FAERS Safety Report 16023920 (Version 1)
Quarter: 2019Q1

REPORT INFORMATION
  Report Type: Spontaneous
  Country: PL (occurrence: PL)
  Receive Date: 20190301
  Receipt Date: 20190301
  Transmission Date: 20190418
  Serious: Yes (Life-Threatening)
  Sender: FDA-Public Use
  Company Number: PL-JNJFOC-20190241806

PATIENT
  Age: 60 Year
  Sex: Male
  Weight: 70 kg

DRUGS (7)
  1. SUCCINYLATED GELATIN [Concomitant]
     Active Substance: SUCCINYLATED GELATIN
     Indication: HYPOTONIA
     Dosage: DOSE: 1MG/1ML
     Route: 042
     Dates: start: 20140925, end: 20140925
  2. HYDROCORTISONE. [Concomitant]
     Active Substance: HYDROCORTISONE
     Indication: HYPERSENSITIVITY
     Route: 042
     Dates: start: 20140925, end: 20140925
  3. ADRENALINE [Concomitant]
     Active Substance: EPINEPHRINE
     Indication: HYPERSENSITIVITY
     Route: 058
     Dates: start: 20140925, end: 20140925
  4. ULTRAVIST [Suspect]
     Active Substance: IOPROMIDE
     Indication: ANGIOCARDIOGRAM
     Route: 022
     Dates: start: 20140925, end: 20140925
  5. ATROPINE. [Concomitant]
     Active Substance: ATROPINE
     Indication: HYPOTONIA
     Route: 042
  6. CLEMASTINE [Concomitant]
     Active Substance: CLEMASTINE
     Indication: HYPERSENSITIVITY
     Route: 042
     Dates: start: 20140925, end: 20140925
  7. REOPRO [Suspect]
     Active Substance: ABCIXIMAB
     Indication: CORONARY ARTERY OCCLUSION
     Route: 042
     Dates: start: 20140925, end: 20140925

REACTIONS (6)
  - Dyspnoea [Recovering/Resolving]
  - Face oedema [Recovering/Resolving]
  - Erythema [Recovering/Resolving]
  - Product use in unapproved indication [Unknown]
  - Off label use [Unknown]
  - Pruritus [Recovering/Resolving]

NARRATIVE: CASE EVENT DATE: 20140925
